FAERS Safety Report 7801979-8 (Version None)
Quarter: 2011Q4

REPORT INFORMATION
  Report Type: 
  Country: None (occurrence: None)
  Receive Date: 20111007
  Receipt Date: 20110927
  Transmission Date: 20120403
  Serious: Yes (Hospitalization)
  Sender: FDA-Public Use
  Company Number: US-BAYER-2011-018999

PATIENT
  Age: 40 Year
  Sex: Female
  Weight: 81 kg

DRUGS (2)
  1. PAXIL [Concomitant]
     Dosage: 10 MG, UNK
     Route: 048
  2. YAZ [Suspect]
     Indication: CONTRACEPTION
     Dosage: UNK
     Route: 048
     Dates: start: 20081201, end: 20090201

REACTIONS (5)
  - PULMONARY EMBOLISM [None]
  - PULMONARY INFARCTION [None]
  - PAIN [None]
  - ANXIETY [None]
  - INJURY [None]
